FAERS Safety Report 19377246 (Version 1)
Quarter: 2021Q2

REPORT INFORMATION
  Report Type: Spontaneous
  Country: US (occurrence: US)
  Receive Date: 20210604
  Receipt Date: 20210604
  Transmission Date: 20210717
  Serious: Yes (Death)
  Sender: FDA-Public Use
  Company Number: US-CELGENEUS-USA-20210601064

PATIENT
  Age: 79 Year
  Sex: Female

DRUGS (3)
  1. REVLIMID [Suspect]
     Active Substance: LENALIDOMIDE
     Indication: CUTANEOUS T-CELL LYMPHOMA
     Dosage: 25 MILLIGRAM
     Route: 048
     Dates: start: 20210407, end: 2021
  2. REVLIMID [Suspect]
     Active Substance: LENALIDOMIDE
     Indication: OFF LABEL USE
  3. REVLIMID [Suspect]
     Active Substance: LENALIDOMIDE
     Indication: NEOPLASM

REACTIONS (1)
  - Death [Fatal]

NARRATIVE: CASE EVENT DATE: 20210531
